FAERS Safety Report 9295900 (Version 1)
Quarter: 2013Q2

REPORT INFORMATION
  Report Type: Spontaneous
  Country: US (occurrence: US)
  Receive Date: 20130517
  Receipt Date: 20130517
  Transmission Date: 20140414
  Serious: Yes (Death)
  Sender: FDA-Public Use
  Company Number: US-PFIZER INC-2013151202

PATIENT
  Age: 57 Year
  Sex: Female

DRUGS (2)
  1. NEURONTIN [Suspect]
     Dosage: 400 MG, 4X/DAY
     Route: 048
     Dates: start: 2010
  2. EFFEXOR [Suspect]
     Dosage: 150 MG, 2X/DAY
     Route: 048
     Dates: start: 2010

REACTIONS (1)
  - Death [Fatal]
